FAERS Safety Report 6226340-1 (Version None)
Quarter: 2009Q2

REPORT INFORMATION
  Report Type: 
  Country: None (occurrence: None)
  Receive Date: 20090612
  Receipt Date: 20090529
  Transmission Date: 20091009
  Serious: Yes (Other)
  Sender: FDA-Public Use
  Company Number: IT-JNJFOC-20090603608

PATIENT
  Sex: Female

DRUGS (1)
  1. REMICADE [Suspect]
     Indication: RHEUMATOID ARTHRITIS
     Dosage: MAINTENANCE DOSE 4-4.99MG/KG
     Route: 042

REACTIONS (4)
  - ERYTHEMA [None]
  - INDURATION [None]
  - NECROSIS [None]
  - PAIN [None]
